FAERS Safety Report 14211538 (Version 1)
Quarter: 2017Q4

REPORT INFORMATION
  Report Type: Spontaneous
  Country: US (occurrence: None)
  Receive Date: 20171121
  Receipt Date: 20171121
  Transmission Date: 20180321
  Serious: Yes (Other)
  Sender: FDA-Public Use
  Company Number: None

PATIENT
  Age: 68 Year
  Sex: Female

DRUGS (5)
  1. METFORMIN [Concomitant]
     Active Substance: METFORMIN HYDROCHLORIDE
  2. VYTORIN [Concomitant]
     Active Substance: EZETIMIBE\SIMVASTATIN
  3. CAPECITABINE. [Suspect]
     Active Substance: CAPECITABINE
     Indication: OSTEOPOROSIS
     Route: 048
     Dates: start: 20170307
  4. ATENOLOL. [Concomitant]
     Active Substance: ATENOLOL
  5. XYZAL [Concomitant]
     Active Substance: LEVOCETIRIZINE DIHYDROCHLORIDE

REACTIONS (8)
  - Fatigue [None]
  - Nausea [None]
  - Stomatitis [None]
  - Noninfective gingivitis [None]
  - Therapy cessation [None]
  - Cheilitis [None]
  - Feeding disorder [None]
  - Vomiting [None]

NARRATIVE: CASE EVENT DATE: 2017
